FAERS Safety Report 8013600-7 (Version None)
Quarter: 2011Q4

REPORT INFORMATION
  Report Type: 
  Country: None (occurrence: None)
  Receive Date: 20111229
  Receipt Date: 20111226
  Transmission Date: 20120403
  Serious: Yes (Death)
  Sender: FDA-Public Use
  Company Number: TN-SANOFI-AVENTIS-2011SA084979

PATIENT
  Age: 77 Year
  Sex: Male

DRUGS (5)
  1. ASPEGIC 325 [Concomitant]
     Route: 048
     Dates: end: 20111027
  2. PLAVIX [Suspect]
     Route: 048
     Dates: start: 20111020, end: 20111027
  3. ATORVASTATIN [Concomitant]
     Route: 048
     Dates: end: 20111027
  4. INSULIN [Concomitant]
     Route: 058
     Dates: end: 20111027
  5. PLAVIX [Suspect]
     Route: 048
     Dates: start: 20111020, end: 20111027

REACTIONS (1)
  - RENAL FAILURE ACUTE [None]
